FAERS Safety Report 10027679 (Version 3)
Quarter: 2014Q2

REPORT INFORMATION
  Report Type: Spontaneous
  Country: US (occurrence: US)
  Receive Date: 20140321
  Receipt Date: 20140402
  Transmission Date: 20141212
  Serious: Yes (Other)
  Sender: FDA-Public Use
  Company Number: PHEH2014US003042

PATIENT
  Age: 77 Year
  Sex: Female

DRUGS (28)
  1. TOBI [Suspect]
     Indication: BRONCHIECTASIS
     Dosage: 300 MG (300 MG/5ML), BID
     Dates: start: 201308
  2. TOBI [Suspect]
     Dosage: UNK
  3. TOBI PODHALER [Suspect]
     Dosage: UNK UKN, UNK
  4. TOBI PODHALER [Suspect]
     Dosage: UNK
  5. TOBI PODHALER [Suspect]
     Dosage: THIRD TREATMENT,TWO DAYS AGO
  6. LEVAQUIN [Concomitant]
     Dosage: UNK
  7. PREDNISONE [Concomitant]
     Dosage: UNK
  8. MULTI-VIT [Concomitant]
     Dosage: UNK UKN, UNK
  9. CALCIUM + VIT D [Concomitant]
     Dosage: UNK UKN, UNK
  10. MUCINEX [Concomitant]
     Dosage: UNK UKN, UNK
  11. METOPROLOL [Concomitant]
     Dosage: UNK UKN, UNK
  12. LIVALO [Concomitant]
     Dosage: UNK UKN, UNK
  13. BABY ASPIRIN [Concomitant]
     Dosage: UNK UKN, UNK
  14. PROBIOTICS [Concomitant]
     Dosage: UNK
  15. ALBUTEROL [Concomitant]
     Dosage: UNK UKN, UNK
  16. PITAVASTATIN [Concomitant]
  17. ASA [Concomitant]
     Dosage: UNK UKN, UNK
  18. KCL [Concomitant]
     Dosage: UNK
  19. RESTORIL [Concomitant]
     Dosage: UNK
  20. GUAIFENESIN [Concomitant]
     Dosage: UNK
  21. SPIRIVA [Concomitant]
     Dosage: UNK
  22. TRAMADOL [Concomitant]
     Dosage: UNK
  23. UBIQUINONE [Concomitant]
     Dosage: UNK UKN, UNK
  24. AMITRIPTYLINE [Concomitant]
  25. COQ10 [Concomitant]
     Dosage: UNK
  26. CALCIUM [Concomitant]
     Dosage: UNK
  27. TOPROL [Concomitant]
     Dosage: UNK
  28. LEVOLO [Concomitant]
     Dosage: UNK

REACTIONS (7)
  - Tracheobronchitis [Recovering/Resolving]
  - Lung infection [Recovered/Resolved]
  - Chronic obstructive pulmonary disease [Recovering/Resolving]
  - Asthenia [Unknown]
  - Malaise [Unknown]
  - Dyspnoea [Unknown]
  - Cough [Unknown]
